FAERS Safety Report 25497648 (Version 1)
Quarter: 2025Q3

REPORT INFORMATION
  Report Type: Spontaneous
  Country: US (occurrence: US)
  Receive Date: 20250701
  Receipt Date: 20250701
  Transmission Date: 20251020
  Serious: No
  Sender: MERCK SHARP & DOHME LLC
  Company Number: US-009507513-2296944

PATIENT
  Age: 81 Year
  Sex: Female

DRUGS (1)
  1. VERQUVO [Suspect]
     Active Substance: VERICIGUAT
     Indication: Cardiovascular disorder
     Dosage: STRENGTH: 2.5 MG; 1 TABLET ONCE A DAY
     Route: 048
     Dates: start: 20250601, end: 20250605

REACTIONS (2)
  - Confusional state [Not Recovered/Not Resolved]
  - Hypotension [Not Recovered/Not Resolved]

NARRATIVE: CASE EVENT DATE: 20250604
